FAERS Safety Report 24442469 (Version 2)
Quarter: 2024Q4

REPORT INFORMATION
  Report Type: Report from Study
  Country: CA (occurrence: CA)
  Receive Date: 20241016
  Receipt Date: 20241017
  Transmission Date: 20250114
  Serious: No
  Sender: ROCHE
  Company Number: CA-ROCHE-3540603

PATIENT
  Age: 4 Year
  Sex: Male

DRUGS (2)
  1. HEMLIBRA [Suspect]
     Active Substance: EMICIZUMAB-KXWH
     Indication: Factor VIII deficiency
     Dosage: 3 MG/KG/WEEK FOR 4 WEEKS AND THEN 1.5 MG/KG/WEEK
     Route: 058
     Dates: start: 20201201
  2. HEMLIBRA [Suspect]
     Active Substance: EMICIZUMAB-KXWH
     Dosage: 3 MG/KG/WEEK FOR 4 WEEKS AND THEN 1.5 MG/KG/WEEK
     Route: 058
     Dates: start: 20201201

REACTIONS (2)
  - Upper respiratory tract infection [Unknown]
  - Anxiety [Unknown]
